FAERS Safety Report 5691561-3 (Version None)
Quarter: 2008Q2

REPORT INFORMATION
  Report Type: 
  Country: None (occurrence: None)
  Receive Date: 20080402
  Receipt Date: 20041025
  Transmission Date: 20081010
  Serious: Yes (Death)
  Sender: FDA-Public Use
  Company Number: US-ROCHE-384490

PATIENT
  Age: 54 Year
  Sex: Male
  Weight: 81.2 kg

DRUGS (6)
  1. PEGASYS [Suspect]
     Indication: HEPATITIS C
     Route: 058
     Dates: start: 20040830
  2. RIBAVIRIN [Suspect]
     Indication: DRUG USE FOR UNKNOWN INDICATION
     Route: 048
     Dates: start: 20040830
  3. SPIRONOLACTONE [Concomitant]
  4. NEXIUM [Concomitant]
  5. LACTULOSE [Concomitant]
  6. ALBUTEROL [Concomitant]

REACTIONS (5)
  - BLOOD ALBUMIN ABNORMAL [None]
  - DEATH [None]
  - DIZZINESS [None]
  - FALL [None]
  - INTERNATIONAL NORMALISED RATIO INCREASED [None]
